FAERS Safety Report 18268149 (Version 1)
Quarter: 2020Q3

REPORT INFORMATION
  Report Type: Spontaneous
  Country: US (occurrence: US)
  Receive Date: 20200915
  Receipt Date: 20200915
  Transmission Date: 20201103
  Serious: Yes (Hospitalization)
  Sender: FDA-Public Use
  Company Number: None

PATIENT
  Age: 60 Year
  Sex: Male

DRUGS (22)
  1. LORATADINE. [Concomitant]
     Active Substance: LORATADINE
  2. CAPSAICIN. [Concomitant]
     Active Substance: CAPSAICIN
  3. TRIUMEQ [Suspect]
     Active Substance: ABACAVIR SULFATE\DOLUTEGRAVIR SODIUM\LAMIVUDINE
     Indication: PRODUCT PRESCRIBING ISSUE
     Route: 048
  4. FLUTICASONE. [Concomitant]
     Active Substance: FLUTICASONE
  5. ADVAIR HFA [Concomitant]
     Active Substance: FLUTICASONE PROPIONATE\SALMETEROL XINAFOATE
  6. OXYCODONE [Concomitant]
     Active Substance: OXYCODONE
  7. ALLOPURINOL. [Concomitant]
     Active Substance: ALLOPURINOL
  8. LEVEMIR [Concomitant]
     Active Substance: INSULIN DETEMIR
  9. JANUVIA [Concomitant]
     Active Substance: SITAGLIPTIN PHOSPHATE
  10. MECLIZINE [Concomitant]
     Active Substance: MECLIZINE HYDROCHLORIDE
  11. OMEPRAZOLE. [Concomitant]
     Active Substance: OMEPRAZOLE
  12. AUSTEDO [Concomitant]
     Active Substance: DEUTETRABENAZINE
  13. DEPAKOTE [Concomitant]
     Active Substance: DIVALPROEX SODIUM
  14. PERCOCET [Concomitant]
     Active Substance: ACETAMINOPHEN\OXYCODONE HYDROCHLORIDE
  15. ABILIFY [Concomitant]
     Active Substance: ARIPIPRAZOLE
  16. DEPAKOTE [Concomitant]
     Active Substance: DIVALPROEX SODIUM
  17. ABILIFY [Concomitant]
     Active Substance: ARIPIPRAZOLE
  18. DEPAKOTE [Concomitant]
     Active Substance: DIVALPROEX SODIUM
  19. PROAIR HFA [Concomitant]
     Active Substance: ALBUTEROL SULFATE
  20. AMLODIPINE BESYLATE. [Concomitant]
     Active Substance: AMLODIPINE BESYLATE
  21. FLUTICASONE. [Concomitant]
     Active Substance: FLUTICASONE
  22. HYDROCHLOROTHIAZIDE. [Concomitant]
     Active Substance: HYDROCHLOROTHIAZIDE

REACTIONS (1)
  - Cardiac disorder [None]

NARRATIVE: CASE EVENT DATE: 20200914
